FAERS Safety Report 13254387 (Version 3)
Quarter: 2018Q2

REPORT INFORMATION
  Report Type: Spontaneous
  Country: JP (occurrence: JP)
  Receive Date: 20170221
  Receipt Date: 20180613
  Transmission Date: 20180711
  Serious: Yes (Life-Threatening, Hospitalization, Other)
  Sender: FDA-Public Use
  Company Number: JP-ACCORD-048475

PATIENT
  Age: 23 Year
  Sex: Female

DRUGS (2)
  1. CISPLATIN. [Suspect]
     Active Substance: CISPLATIN
     Indication: GASTRIC CANCER STAGE IV
     Dosage: DAY 8 OF EACH 35-DAY TREATMENT CYCLE
  2. TEGAFUR/GIMERACIL/OTERACIL POTASSIUM [Suspect]
     Active Substance: GIMERACIL\OTERACIL\TEGAFUR
     Indication: GASTRIC CANCER STAGE IV
     Dosage: DAYS 1 TO 21

REACTIONS (13)
  - Haemostasis [None]
  - Angiopathy [None]
  - Decreased activity [None]
  - Loss of consciousness [Recovered/Resolved]
  - International normalised ratio increased [None]
  - Fibrin D dimer increased [None]
  - Platelet count decreased [None]
  - Deep vein thrombosis [Recovered/Resolved]
  - Shock [Unknown]
  - Dehydration [None]
  - Pulmonary embolism [Recovered/Resolved]
  - Nausea [Recovered/Resolved]
  - Anaemia [Recovered/Resolved]
